FAERS Safety Report 24766540 (Version 3)
Quarter: 2025Q1

REPORT INFORMATION
  Report Type: Spontaneous
  Country: GB (occurrence: GB)
  Receive Date: 20241223
  Receipt Date: 20250127
  Transmission Date: 20250409
  Serious: Yes (Hospitalization)
  Sender: MYLAN
  Company Number: GB-MYLANLABS-2024M1114850

PATIENT
  Age: 23 Year
  Sex: Female

DRUGS (5)
  1. CLOZARIL [Suspect]
     Active Substance: CLOZAPINE
     Indication: Schizophrenia
     Dosage: UNK, BID (100MG MANE AND 150MG NOCTE)
     Route: 048
     Dates: start: 20191218
  2. CLOZARIL [Suspect]
     Active Substance: CLOZAPINE
     Route: 048
  3. SCOPOLAMINE HYDROBROMIDE [Concomitant]
     Active Substance: SCOPOLAMINE HYDROBROMIDE
     Indication: Drooling
     Dosage: 300 MICROGRAM, TID (THREE TIMES DAILY)
     Route: 065
  4. SENNA [Concomitant]
     Active Substance: SENNOSIDES
     Dosage: 15 MILLIGRAM, QD (15MG DAILY AT NIGHT)
     Route: 048
  5. FOLIC ACID [Concomitant]
     Active Substance: FOLIC ACID
     Dosage: 5 MILLIGRAM, QD (5MG DAILY)
     Route: 065

REACTIONS (6)
  - Delusion [Unknown]
  - Anosognosia [Unknown]
  - Schizophrenia [Unknown]
  - Somnolence [Unknown]
  - Treatment noncompliance [Unknown]
  - Therapy interrupted [Unknown]

NARRATIVE: CASE EVENT DATE: 20241212
